FAERS Safety Report 13738051 (Version 1)
Quarter: 2017Q3

REPORT INFORMATION
  Report Type: Spontaneous
  Country: AU (occurrence: AU)
  Receive Date: 20170710
  Receipt Date: 20170710
  Transmission Date: 20171127
  Serious: Yes (Other)
  Sender: FDA-Public Use
  Company Number: AU-PFIZER INC-2017289017

PATIENT
  Sex: Female

DRUGS (1)
  1. GENTAMICIN. [Suspect]
     Active Substance: GENTAMICIN
     Dosage: 80 MG, UNK

REACTIONS (3)
  - Anosmia [Unknown]
  - Deafness [Unknown]
  - Dysgeusia [Unknown]
